FAERS Safety Report 18248271 (Version 2)
Quarter: 2020Q4

REPORT INFORMATION
  Report Type: Spontaneous
  Country: GB (occurrence: GB)
  Receive Date: 20200909
  Receipt Date: 20201204
  Transmission Date: 20210113
  Serious: Yes (Death)
  Sender: FDA-Public Use
  Company Number: GB-MYLANLABS-2020M1076406

PATIENT
  Age: 60 Year
  Sex: Male
  Weight: 67 kg

DRUGS (1)
  1. WARFARIN [Suspect]
     Active Substance: WARFARIN
     Indication: MITRAL VALVE REPLACEMENT
     Dosage: UNK
     Route: 048

REACTIONS (2)
  - Haemorrhage intracranial [Fatal]
  - Neurological decompensation [Unknown]

NARRATIVE: CASE EVENT DATE: 20200723
